FAERS Safety Report 14981247 (Version 2)
Quarter: 2018Q3

REPORT INFORMATION
  Report Type: Not Available
  Country: US (occurrence: US)
  Receive Date: 20180606
  Receipt Date: 20180710
  Transmission Date: 20181010
  Serious: No
  Sender: FDA-Public Use
  Company Number: US-NEUROCRINE BIOSCIENCES INC.-2018NBI01611

PATIENT
  Sex: Female

DRUGS (3)
  1. INGREZZA [Suspect]
     Active Substance: VALBENAZINE
     Indication: PRODUCT USED FOR UNKNOWN INDICATION
     Route: 048
     Dates: start: 20170912, end: 20170918
  2. INGREZZA [Suspect]
     Active Substance: VALBENAZINE
     Dosage: 2 OF THE 40 MG CAPSULES
     Route: 048
     Dates: start: 20170919, end: 201804
  3. INGREZZA [Suspect]
     Active Substance: VALBENAZINE
     Route: 048
     Dates: start: 201804

REACTIONS (1)
  - Dyskinesia [Unknown]
